FAERS Safety Report 9747215 (Version 6)
Quarter: 2014Q2

REPORT INFORMATION
  Report Type: Report from Study
  Country: CA (occurrence: CA)
  Receive Date: 20131212
  Receipt Date: 20140416
  Transmission Date: 20141212
  Serious: Yes (Hospitalization, Other)
  Sender: FDA-Public Use
  Company Number: CA-ROCHE-1230130

PATIENT
  Age: 63 Year
  Sex: Male
  Weight: 94 kg

DRUGS (7)
  1. AVASTIN [Suspect]
     Indication: GLIOBLASTOMA
     Route: 042
     Dates: start: 20130514
  2. RAMIPRIL [Concomitant]
  3. DILANTIN [Concomitant]
  4. RANITIDINE [Concomitant]
  5. DEXAMETHASONE [Concomitant]
  6. VITAMIN E [Concomitant]
  7. COENZYME Q-10 [Concomitant]

REACTIONS (10)
  - Incision site infection [Not Recovered/Not Resolved]
  - Hypoaesthesia [Not Recovered/Not Resolved]
  - Abasia [Not Recovered/Not Resolved]
  - Speech disorder [Not Recovered/Not Resolved]
  - Confusional state [Not Recovered/Not Resolved]
  - Cyst [Not Recovered/Not Resolved]
  - Erythema [Not Recovered/Not Resolved]
  - Dysphonia [Not Recovered/Not Resolved]
  - Oropharyngeal pain [Not Recovered/Not Resolved]
  - Disease progression [Unknown]
